FAERS Safety Report 4735550-1 (Version None)
Quarter: 2005Q3

REPORT INFORMATION
  Report Type: 
  Country: None (occurrence: None)
  Receive Date: 20050805
  Receipt Date: 20050728
  Transmission Date: 20060218
  Serious: Yes (Hospitalization, Other)
  Sender: FDA-Public Use
  Company Number: US-MERCK-0508USA00032

PATIENT
  Sex: Female

DRUGS (4)
  1. EMEND [Suspect]
     Route: 048
     Dates: start: 20050726
  2. DOXORUBICIN [Concomitant]
     Route: 065
  3. ALAXI [Suspect]
     Route: 065
  4. [COMPOSITION UNSPECIFIED] [Concomitant]
     Route: 065

REACTIONS (1)
  - CONVULSION [None]
